FAERS Safety Report 6551742-3 (Version None)
Quarter: 2010Q1

REPORT INFORMATION
  Report Type: 
  Country: None (occurrence: None)
  Receive Date: 20100120
  Receipt Date: 20100115
  Transmission Date: 20100710
  Serious: Yes (Other)
  Sender: FDA-Public Use
  Company Number: A0839714A

PATIENT
  Age: 53 Year
  Sex: Female

DRUGS (1)
  1. UREA PEROXIDE [Suspect]
     Indication: DRUG USE FOR UNKNOWN INDICATION
     Dosage: SINGLE DOSE / AURAL
     Route: 001

REACTIONS (3)
  - CONDITION AGGRAVATED [None]
  - DEAFNESS UNILATERAL [None]
  - TINNITUS [None]
